FAERS Safety Report 19020576 (Version 13)
Quarter: 2022Q2

REPORT INFORMATION
  Report Type: Report from Study
  Country: CO (occurrence: CO)
  Receive Date: 20210317
  Receipt Date: 20220608
  Transmission Date: 20220720
  Serious: Yes (Hospitalization, Disabling, Other)
  Sender: FDA-Public Use
  Company Number: CO-TAKEDA-CO202033484

PATIENT
  Age: 49 Year
  Sex: Male
  Weight: 63 kg

DRUGS (1)
  1. VELAGLUCERASE ALFA [Suspect]
     Active Substance: VELAGLUCERASE ALFA
     Indication: Gaucher^s disease
     Dosage: 1600 INTERNATIONAL UNIT, Q2WEEKS
     Route: 042
     Dates: start: 20130813

REACTIONS (31)
  - Mobility decreased [Recovering/Resolving]
  - Inflammation [Recovering/Resolving]
  - Pain in extremity [Recovered/Resolved]
  - Burning sensation [Recovering/Resolving]
  - Cardiac infection [Recovering/Resolving]
  - Cough [Unknown]
  - Neoplasm malignant [Unknown]
  - Choking [Unknown]
  - Osteomyelitis [Unknown]
  - Post procedural complication [Unknown]
  - Infection [Unknown]
  - Muscle abscess [Unknown]
  - Unevaluable event [Recovering/Resolving]
  - Influenza [Recovering/Resolving]
  - Abdominal mass [Not Recovered/Not Resolved]
  - Weight increased [Unknown]
  - Oropharyngeal discomfort [Unknown]
  - Nasopharyngitis [Recovering/Resolving]
  - Rhinorrhoea [Not Recovered/Not Resolved]
  - Scar [Unknown]
  - Fracture [Recovering/Resolving]
  - Bacterial infection [Recovering/Resolving]
  - Limb injury [Recovering/Resolving]
  - Osteoarthritis [Unknown]
  - Fall [Recovering/Resolving]
  - Erythema [Not Recovered/Not Resolved]
  - Feeling hot [Not Recovered/Not Resolved]
  - Arthralgia [Recovered/Resolved]
  - Prescribed underdose [Unknown]
  - Product dose omission issue [Unknown]
  - Dose calculation error [Unknown]

NARRATIVE: CASE EVENT DATE: 20201005
